FAERS Safety Report 12993436 (Version 1)
Quarter: 2016Q4

REPORT INFORMATION
  Report Type: Spontaneous
  Country: DK (occurrence: DK)
  Receive Date: 20161202
  Receipt Date: 20161202
  Transmission Date: 20170207
  Serious: Yes (Other)
  Sender: FDA-Public Use
  Company Number: DK-TEVA-714521ACC

PATIENT
  Age: 61 Year
  Sex: Female

DRUGS (6)
  1. ELTROXIN [Concomitant]
     Active Substance: LEVOTHYROXINE
     Indication: HYPOTHYROIDISM
     Dosage: 2 DOSAGE FORMS DAILY; 2 DF, EACH EVENING
     Route: 048
     Dates: start: 20151125
  2. ANCOZAN COMP [Concomitant]
     Active Substance: HYDROCHLOROTHIAZIDE\LOSARTAN POTASSIUM
     Indication: HYPERTENSION
     Dosage: 2 DF, EACH MORNING
     Route: 048
     Dates: start: 20150701
  3. OLANZAPINE. [Suspect]
     Active Substance: OLANZAPINE
     Indication: AGGRESSION
     Dosage: 15 MG, PRN
     Route: 048
     Dates: start: 20151202
  4. ZYPADHERA [Suspect]
     Active Substance: OLANZAPINE PAMOATE
     Indication: BIPOLAR DISORDER
     Dosage: 300 MG, 2/M
     Route: 030
     Dates: start: 20151214, end: 201603
  5. BICILLIN L-A [Concomitant]
     Active Substance: PENICILLIN G BENZATHINE
     Indication: INFECTION
     Dosage: 6 DOSAGE FORMS DAILY; 2 DF, TID
     Route: 048
     Dates: start: 20151029, end: 20160106
  6. PINEX [Concomitant]
     Active Substance: ACETAMINOPHEN
     Indication: PAIN
     Dosage: 8 DF, PRN
     Route: 048
     Dates: start: 20151203, end: 20160622

REACTIONS (9)
  - Serum ferritin increased [Recovered/Resolved]
  - Blood triglycerides increased [Not Recovered/Not Resolved]
  - Off label use [Unknown]
  - Alanine aminotransferase increased [Not Recovered/Not Resolved]
  - Blood cholesterol abnormal [Recovered/Resolved]
  - Gamma-glutamyltransferase increased [Not Recovered/Not Resolved]
  - Prescribed overdose [Unknown]
  - Blood lactate dehydrogenase increased [Not Recovered/Not Resolved]
  - Blood alkaline phosphatase increased [Not Recovered/Not Resolved]

NARRATIVE: CASE EVENT DATE: 20160210
